FAERS Safety Report 7516806-6 (Version None)
Quarter: 2011Q2

REPORT INFORMATION
  Report Type: 
  Country: None (occurrence: None)
  Receive Date: 20110601
  Receipt Date: 20110527
  Transmission Date: 20111010
  Serious: Yes (Other)
  Sender: FDA-Public Use
  Company Number: DE-MERCK-1102DEU00121

PATIENT
  Age: 83 Year
  Sex: Female

DRUGS (9)
  1. JANUMET [Suspect]
     Route: 048
     Dates: start: 20110212, end: 20110201
  2. JANUMET [Suspect]
     Route: 048
     Dates: start: 20110201, end: 20110101
  3. CANDESARTAN CILEXETIL AND HYDROCHLOROTHIAZIDE [Concomitant]
     Route: 048
  4. PANTOPRAZOLE [Concomitant]
     Route: 065
  5. INSULIN, BIPHASIC ISOPHANE [INJECTION] [Concomitant]
     Route: 058
  6. SIMVASTATIN [Concomitant]
     Route: 048
  7. JANUMET [Suspect]
     Route: 048
     Dates: start: 20110101
  8. ASPIRIN [Concomitant]
     Route: 065
  9. BISOPROLOL [Concomitant]
     Route: 065

REACTIONS (1)
  - BLOOD PRESSURE INCREASED [None]
